FAERS Safety Report 12288633 (Version 2)
Quarter: 2016Q2

REPORT INFORMATION
  Report Type: Spontaneous
  Country: US (occurrence: US)
  Receive Date: 20160421
  Receipt Date: 20160509
  Transmission Date: 20160815
  Serious: Yes (Hospitalization, Disabling)
  Sender: FDA-Public Use
  Company Number: GXBR2016US001317

PATIENT
  Age: 48 Year
  Sex: Female
  Weight: 90.7 kg

DRUGS (12)
  1. DETROL LA [Concomitant]
     Active Substance: TOLTERODINE TARTRATE
     Indication: BLADDER DISORDER
     Dosage: UNK DF, UNK
     Route: 065
  2. AMANTADINE [Concomitant]
     Active Substance: AMANTADINE
     Indication: PRODUCT USED FOR UNKNOWN INDICATION
     Dosage: UNK DF, UNK
     Route: 065
  3. LAMICTAL [Concomitant]
     Active Substance: LAMOTRIGINE
     Indication: BIPOLAR DISORDER
     Dosage: UNK DF, UNK
     Route: 065
  4. AMBIEN [Concomitant]
     Active Substance: ZOLPIDEM TARTRATE
     Indication: PRODUCT USED FOR UNKNOWN INDICATION
     Dosage: 10 MG, UNK
     Route: 065
  5. CELEXA [Concomitant]
     Active Substance: CITALOPRAM HYDROBROMIDE
     Indication: PRODUCT USED FOR UNKNOWN INDICATION
     Dosage: 40 MG, UNK
     Route: 065
  6. ZANAFLEX [Concomitant]
     Active Substance: TIZANIDINE HYDROCHLORIDE
     Indication: MUSCLE SPASMS
     Dosage: UNK DF, UNK
     Route: 065
  7. TOPAMAX [Concomitant]
     Active Substance: TOPIRAMATE
     Indication: MIGRAINE
     Dosage: UNK DF, UNK
     Route: 065
  8. VOLTAREN//DICLOFENAC DIETHYLAMINE [Concomitant]
     Indication: ARTHRITIS
     Dosage: UNK DF, UNK
     Route: 065
  9. GLATOPA [Suspect]
     Active Substance: GLATIRAMER ACETATE
     Indication: MULTIPLE SCLEROSIS
     Dosage: 20 MG/ML, QD
     Route: 065
     Dates: start: 201507, end: 201509
  10. PROTONIX//PANTOPRAZOLE SODIUM SESQUIHYDRATE [Concomitant]
     Indication: ULCER HAEMORRHAGE
     Dosage: UNK DF, UNK
     Route: 065
  11. SEROQUEL [Concomitant]
     Active Substance: QUETIAPINE FUMARATE
     Indication: BIPOLAR DISORDER
     Dosage: 800 MG, UNK
     Route: 065
  12. SYNTHROID [Concomitant]
     Active Substance: LEVOTHYROXINE SODIUM
     Indication: THYROID DISORDER
     Dosage: UNK DF, UNK
     Route: 065

REACTIONS (8)
  - Feeling abnormal [Not Recovered/Not Resolved]
  - Dizziness [Not Recovered/Not Resolved]
  - Balance disorder [Not Recovered/Not Resolved]
  - Drug ineffective [Unknown]
  - Multiple sclerosis [Not Recovered/Not Resolved]
  - Gait disturbance [Not Recovered/Not Resolved]
  - Urinary incontinence [Not Recovered/Not Resolved]
  - Fall [Not Recovered/Not Resolved]

NARRATIVE: CASE EVENT DATE: 201507
